FAERS Safety Report 8271102-7 (Version None)
Quarter: 2012Q2

REPORT INFORMATION
  Report Type: 
  Country: None (occurrence: None)
  Receive Date: 20120406
  Receipt Date: 20120326
  Transmission Date: 20120825
  Serious: Yes (Hospitalization)
  Sender: FDA-Public Use
  Company Number: 131803

PATIENT
  Age: 65 Year
  Sex: Male
  Weight: 65 kg

DRUGS (1)
  1. LEUCOVORIN CALCIUM [Suspect]
     Indication: COLORECTAL CANCER METASTATIC
     Dates: start: 20120124, end: 20120208

REACTIONS (10)
  - NASOPHARYNGITIS [None]
  - VIRAL INFECTION [None]
  - METASTASES TO MENINGES [None]
  - LYMPHOMA [None]
  - NEUTROPENIA [None]
  - VISION BLURRED [None]
  - DECREASED APPETITE [None]
  - EYELID PTOSIS [None]
  - OPTIC NEURITIS [None]
  - DIARRHOEA [None]
